FAERS Safety Report 6542489-8 (Version None)
Quarter: 2010Q1

REPORT INFORMATION
  Report Type: 
  Country: None (occurrence: None)
  Receive Date: 20100119
  Receipt Date: 20100112
  Transmission Date: 20100710
  Serious: Yes (Life-Threatening, Hospitalization)
  Sender: FDA-Public Use
  Company Number: FR-TEVA-220940ISR

PATIENT
  Sex: Male

DRUGS (9)
  1. IRINOTECAN HCL [Suspect]
     Indication: GASTRIC CANCER
     Route: 042
     Dates: start: 20080513, end: 20080513
  2. FLUOROURACIL [Suspect]
     Indication: GASTRIC CANCER
     Route: 040
     Dates: start: 20080513, end: 20080515
  3. FLUOROURACIL [Suspect]
     Route: 041
     Dates: start: 20080513, end: 20080515
  4. FOLINIC ACID [Suspect]
     Indication: GASTRIC CANCER
     Route: 042
     Dates: start: 20080513, end: 20080513
  5. METHYLPREDNISOLONE SODIUM SUCCINATE [Concomitant]
     Dates: start: 20080401
  6. ZOLPIDEM [Concomitant]
  7. INSULIN GLARGINE [Concomitant]
  8. PANTOPRAZOLE [Concomitant]
  9. HEPARIN SODIUM [Concomitant]
     Dates: start: 20080410

REACTIONS (2)
  - DIARRHOEA [None]
  - GENERAL PHYSICAL HEALTH DETERIORATION [None]
